FAERS Safety Report 9759727 (Version 1)
Quarter: 2013Q4

REPORT INFORMATION
  Report Type: Report from Study
  Country: US (occurrence: US)
  Receive Date: 20131216
  Receipt Date: 20131216
  Transmission Date: 20140711
  Serious: No
  Sender: FDA-Public Use
  Company Number: US-ABBVIE-13P-163-1123528-00

PATIENT
  Sex: Female
  Weight: 98.97 kg

DRUGS (5)
  1. TRILIPIX [Suspect]
     Indication: BLOOD CHOLESTEROL
     Route: 048
     Dates: start: 2012
  2. TRILIPIX [Suspect]
     Route: 048
     Dates: start: 2012
  3. FISH OIL [Concomitant]
     Indication: PRODUCT USED FOR UNKNOWN INDICATION
  4. DIABETES MEDICATION [Concomitant]
     Indication: PRODUCT USED FOR UNKNOWN INDICATION
  5. ANTI HYPERTENSIVE [Concomitant]
     Indication: PRODUCT USED FOR UNKNOWN INDICATION

REACTIONS (1)
  - Muscle spasms [Recovered/Resolved]
